FAERS Safety Report 8438548-5 (Version None)
Quarter: 2012Q2

REPORT INFORMATION
  Report Type: 
  Country: None (occurrence: None)
  Receive Date: 20120615
  Receipt Date: 20120306
  Transmission Date: 20120825
  Serious: Yes (Life-Threatening, Hospitalization, Other)
  Sender: FDA-Public Use
  Company Number: CA-ALVOGEN-2011AL000073

PATIENT
  Age: 83 Year
  Sex: Female

DRUGS (1)
  1. MACROBID [Suspect]
     Indication: URINARY TRACT INFECTION
     Dosage: 1.0 DOSAGE FORMS
     Route: 048
     Dates: start: 20120913, end: 20120923

REACTIONS (5)
  - OEDEMA [None]
  - OEDEMA PERIPHERAL [None]
  - TREMOR [None]
  - SKIN WARM [None]
  - ERYTHEMA [None]
